FAERS Safety Report 6847398-2 (Version None)
Quarter: 2010Q3

REPORT INFORMATION
  Report Type: 
  Country: None (occurrence: None)
  Receive Date: 20100716
  Receipt Date: 20100705
  Transmission Date: 20110219
  Serious: Yes (Hospitalization, Other)
  Sender: FDA-Public Use
  Company Number: FR-ELI_LILLY_AND_COMPANY-FR201007001667

PATIENT
  Age: 53 Year
  Sex: Male
  Weight: 102 kg

DRUGS (18)
  1. BYETTA [Suspect]
     Indication: TYPE 2 DIABETES MELLITUS
     Dosage: 10 UG, 2/D
     Route: 058
     Dates: start: 20091113, end: 20100511
  2. HYDROCORTISONE [Concomitant]
     Dosage: 10 MG, UNKNOWN
     Route: 048
  3. NUTROPIN AQ [Concomitant]
     Dosage: 10MG/2ML UNKNOWN
     Route: 058
  4. NUTROPIN AQ [Concomitant]
     Dosage: 2 ML, UNKNOWN
     Route: 058
  5. LEVOTHYROXINE SODIUM [Concomitant]
     Dosage: 175 UG, UNKNOWN
     Route: 048
  6. LEVOTHYROXINE SODIUM [Concomitant]
     Dosage: 50 UG, UNKNOWN
     Route: 048
  7. GLUCOPHAGE [Concomitant]
     Dosage: 1000 MG, 3/D
     Route: 048
  8. MINRIN [Concomitant]
     Dosage: 4 UG/ML, UNK
     Route: 058
  9. KEPPRA [Concomitant]
     Dosage: 500 MG, UNKNOWN
     Route: 048
  10. EFFEXOR XR [Concomitant]
     Dosage: 37.5 MG, UNKNOWN
     Route: 048
  11. LOXAPAC [Concomitant]
     Dosage: UNK, UNKNOWN
     Route: 048
  12. DI ANTALVIC [Concomitant]
     Dosage: UNK, UNKNOWN
     Route: 065
  13. UVEDOSE [Concomitant]
     Dosage: 100000 IU, UNKNOWN
     Route: 048
  14. LOVENOX [Concomitant]
     Dosage: 4000 IU/0.4ML, UNKNOWN
     Route: 058
  15. LOVENOX [Concomitant]
     Dosage: 0.4 ML, UNKNOWN
     Route: 058
  16. TARDYFERON [Concomitant]
     Dosage: 80 MG, UNKNOWN
     Route: 048
  17. DIFFU K [Concomitant]
     Dosage: UNK, UNKNOWN
     Route: 065
  18. ANDROTARDYL [Concomitant]
     Dosage: UNK, UNKNOWN
     Route: 065

REACTIONS (2)
  - DIABETES INSIPIDUS [None]
  - PANCREATITIS [None]
